FAERS Safety Report 11103327 (Version 1)
Quarter: 2015Q2

REPORT INFORMATION
  Report Type: Spontaneous
  Country: US (occurrence: None)
  Receive Date: 20150508
  Receipt Date: 20150508
  Transmission Date: 20150821
  Serious: Yes (Other)
  Sender: FDA-Public Use
  Company Number: None

PATIENT
  Age: 82 Year
  Sex: Female

DRUGS (1)
  1. OTEZLA [Suspect]
     Active Substance: APREMILAST
     Route: 048
     Dates: start: 20150103, end: 20150104

REACTIONS (3)
  - Peripheral swelling [None]
  - Fluid retention [None]
  - Dysuria [None]

NARRATIVE: CASE EVENT DATE: 201503
